FAERS Safety Report 5824248-4 (Version None)
Quarter: 2008Q3

REPORT INFORMATION
  Report Type: 
  Country: None (occurrence: None)
  Receive Date: 20080728
  Receipt Date: 20080707
  Transmission Date: 20090109
  Serious: No
  Sender: FDA-Public Use
  Company Number: US-BAYER-200827188NA

PATIENT
  Sex: Male

DRUGS (1)
  1. AVELOX [Suspect]
     Indication: RESPIRATORY DISORDER

REACTIONS (1)
  - RESPIRATORY DISORDER [None]
